FAERS Safety Report 20213622 (Version 4)
Quarter: 2022Q1

REPORT INFORMATION
  Report Type: Spontaneous
  Country: JP (occurrence: JP)
  Receive Date: 20211221
  Receipt Date: 20220224
  Transmission Date: 20220423
  Serious: Yes (Death, Hospitalization, Other)
  Sender: FDA-Public Use
  Company Number: JP-JNJFOC-20211229146

PATIENT
  Age: 86 Year
  Sex: Female
  Weight: 44.6 kg

DRUGS (10)
  1. OPSUMIT [Suspect]
     Active Substance: MACITENTAN
     Indication: Pulmonary arterial hypertension
     Route: 048
  2. OPSUMIT [Suspect]
     Active Substance: MACITENTAN
     Route: 048
  3. UPTRAVI [Suspect]
     Active Substance: SELEXIPAG
     Indication: Pulmonary arterial hypertension
     Dosage: DOSE UNKNOWN
     Route: 048
     Dates: start: 20210520, end: 2021
  4. UPTRAVI [Suspect]
     Active Substance: SELEXIPAG
     Route: 048
     Dates: start: 2021, end: 2021
  5. UPTRAVI [Suspect]
     Active Substance: SELEXIPAG
     Route: 048
     Dates: start: 2021, end: 2021
  6. UPTRAVI [Suspect]
     Active Substance: SELEXIPAG
     Route: 048
     Dates: start: 2021, end: 2021
  7. UPTRAVI [Suspect]
     Active Substance: SELEXIPAG
     Route: 048
     Dates: start: 2021
  8. RIOCIGUAT [Concomitant]
     Active Substance: RIOCIGUAT
     Indication: Pulmonary arterial hypertension
     Dosage: DOSE UNKNOWN
     Route: 048
  9. RIOCIGUAT [Concomitant]
     Active Substance: RIOCIGUAT
     Route: 048
  10. RIOCIGUAT [Concomitant]
     Active Substance: RIOCIGUAT
     Route: 048

REACTIONS (6)
  - Death [Fatal]
  - Fall [Unknown]
  - Immobile [Unknown]
  - Sepsis [Unknown]
  - Cardiac failure [Unknown]
  - Delirium [Unknown]

NARRATIVE: CASE EVENT DATE: 20210101
